FAERS Safety Report 13259122 (Version 1)
Quarter: 2017Q1

REPORT INFORMATION
  Report Type: Report from Study
  Country: US (occurrence: US)
  Receive Date: 20170222
  Receipt Date: 20170222
  Transmission Date: 20170428
  Serious: Yes (Life-Threatening, Other)
  Sender: FDA-Public Use
  Company Number: US-ROCHE-1895586

PATIENT

DRUGS (1)
  1. BEVACIZUMAB [Suspect]
     Active Substance: BEVACIZUMAB
     Indication: NON-SMALL CELL LUNG CANCER
     Route: 065

REACTIONS (8)
  - White blood cell count abnormal [Unknown]
  - Back pain [Unknown]
  - Lymphopenia [Unknown]
  - Abdominal pain [Unknown]
  - Diverticulitis [Unknown]
  - Neutrophil count abnormal [Unknown]
  - Hypophosphataemia [Unknown]
  - Febrile neutropenia [Unknown]

NARRATIVE: CASE EVENT DATE: 20061028
